FAERS Safety Report 14727353 (Version 1)
Quarter: 2018Q2

REPORT INFORMATION
  Report Type: Spontaneous
  Country: US (occurrence: US)
  Receive Date: 20180402
  Receipt Date: 20180402
  Transmission Date: 20180711
  Serious: Yes (Hospitalization)
  Sender: FDA-Public Use
  Company Number: None

PATIENT
  Age: 59 Year
  Sex: Male

DRUGS (1)
  1. AMPYRA [Suspect]
     Active Substance: DALFAMPRIDINE
     Indication: MULTIPLE SCLEROSIS
     Route: 048
     Dates: start: 20180224

REACTIONS (5)
  - Cellulitis [None]
  - Disease progression [None]
  - Lacunar stroke [None]
  - Asthenia [None]
  - Multiple sclerosis [None]

NARRATIVE: CASE EVENT DATE: 20180328
